FAERS Safety Report 15672655 (Version 2)
Quarter: 2019Q3

REPORT INFORMATION
  Report Type: Report from Study
  Country: US (occurrence: US)
  Receive Date: 20181129
  Receipt Date: 20190930
  Transmission Date: 20191004
  Serious: No
  Sender: FDA-Public Use
  Company Number: US-TESARO-2018-TSO0841-US

PATIENT
  Age: 65 Year
  Sex: Female

DRUGS (3)
  1. NIRAPARIB CAPSULE [Suspect]
     Active Substance: NIRAPARIB
     Dosage: 200 MG, QAM WITHOUT FOOD
     Route: 048
  2. VALTREX S [Concomitant]
     Indication: PRODUCT USED FOR UNKNOWN INDICATION
  3. NIRAPARIB CAPSULE [Suspect]
     Active Substance: NIRAPARIB
     Indication: FALLOPIAN TUBE CANCER
     Dosage: 200 MG, QPM
     Route: 048
     Dates: start: 20180921

REACTIONS (17)
  - Mean cell haemoglobin increased [Unknown]
  - Constipation [Recovering/Resolving]
  - Product dose omission [Unknown]
  - Blood pressure increased [Unknown]
  - Blood glucose increased [Not Recovered/Not Resolved]
  - Dry mouth [Not Recovered/Not Resolved]
  - White blood cell count decreased [Not Recovered/Not Resolved]
  - Red blood cell count decreased [Not Recovered/Not Resolved]
  - Sinus headache [Not Recovered/Not Resolved]
  - Mean cell volume increased [Unknown]
  - Platelet count decreased [Not Recovered/Not Resolved]
  - Underdose [Unknown]
  - Weight decreased [Unknown]
  - Limb discomfort [Recovered/Resolved]
  - Blood count abnormal [Not Recovered/Not Resolved]
  - Multiple allergies [Unknown]
  - Haemoglobin decreased [Not Recovered/Not Resolved]

NARRATIVE: CASE EVENT DATE: 20180925
